FAERS Safety Report 4415283-1 (Version None)
Quarter: 2004Q3

REPORT INFORMATION
  Report Type: 
  Country: None (occurrence: None)
  Receive Date: 20040730
  Receipt Date: 20040720
  Transmission Date: 20050211
  Serious: Yes (Hospitalization)
  Sender: FDA-Public Use
  Company Number: 04P-056-0267711-00

PATIENT
  Age: 13 Year
  Sex: Male

DRUGS (4)
  1. BIAXIN [Suspect]
     Indication: NASOPHARYNGITIS
     Dates: start: 20040501
  2. IBUPROFEN [Suspect]
     Indication: NASOPHARYNGITIS
     Dates: start: 20040501
  3. PREDNISONE TAB [Suspect]
     Indication: NEPHROTIC SYNDROME
     Dosage: PER ORAL
     Route: 048
     Dates: start: 20040101
  4. CELLCEPT [Suspect]
     Indication: NEPHROTIC SYNDROME
     Dosage: PER ORAL
     Route: 048
     Dates: start: 20010101, end: 20040101

REACTIONS (4)
  - DISEASE RECURRENCE [None]
  - NEPHROTIC SYNDROME [None]
  - PRIAPISM [None]
  - THERAPY NON-RESPONDER [None]
